FAERS Safety Report 8274679-0 (Version None)
Quarter: 2012Q2

REPORT INFORMATION
  Report Type: 
  Country: None (occurrence: None)
  Receive Date: 20120411
  Receipt Date: 20120403
  Transmission Date: 20120825
  Serious: Yes (Hospitalization)
  Sender: FDA-Public Use
  Company Number: ES-GLAXOSMITHKLINE-B0794406A

PATIENT
  Age: 53 Year
  Sex: Male

DRUGS (4)
  1. SINOGAN [Suspect]
     Indication: SCHIZOPHRENIA
     Route: 048
     Dates: start: 20100721, end: 20120213
  2. LAMICTAL [Suspect]
     Indication: SCHIZOPHRENIA
     Route: 048
     Dates: start: 20070101, end: 20120213
  3. OXCARBAZEPINE [Suspect]
     Indication: SCHIZOPHRENIA
     Route: 048
     Dates: start: 20070101, end: 20120213
  4. ZYPREXA [Suspect]
     Indication: SCHIZOPHRENIA
     Route: 048
     Dates: start: 20070101, end: 20120202

REACTIONS (3)
  - RESPIRATORY FAILURE [None]
  - DEPRESSED LEVEL OF CONSCIOUSNESS [None]
  - HYPOVENTILATION [None]
